FAERS Safety Report 18107667 (Version 3)
Quarter: 2020Q3

REPORT INFORMATION
  Report Type: Spontaneous
  Country: US (occurrence: US)
  Receive Date: 20200804
  Receipt Date: 20200818
  Transmission Date: 20201103
  Serious: Yes (Other)
  Sender: FDA-Public Use
  Company Number: US-PFIZER INC-2020293416

PATIENT
  Age: 80 Year
  Sex: Female
  Weight: 84.37 kg

DRUGS (2)
  1. IBRANCE [Suspect]
     Active Substance: PALBOCICLIB
     Indication: BREAST CANCER METASTATIC
     Dosage: 125 MG, CYCLIC (ONCE DAILY FOR 21 DAYS ON AND THEN 7 DAYS OFF)
     Route: 048
  2. FASLODEX [Concomitant]
     Active Substance: FULVESTRANT
     Dosage: 500 MG, CYCLIC (EVERY 21 DAYS; 250 MG SHOT IN EACH BUTTOCK)

REACTIONS (4)
  - Second primary malignancy [Unknown]
  - Intraocular melanoma [Unknown]
  - Neoplasm progression [Unknown]
  - Vision blurred [Unknown]
